FAERS Safety Report 9980126 (Version 1)
Quarter: 2014Q1

REPORT INFORMATION
  Report Type: Report from Study
  Country: US (occurrence: US)
  Receive Date: 20140307
  Receipt Date: 20140307
  Transmission Date: 20141002
  Serious: No
  Sender: FDA-Public Use
  Company Number: US-ABBVIE-13P-163-1176801-00

PATIENT
  Age: 56 Year
  Sex: Female
  Weight: 58.11 kg

DRUGS (9)
  1. HUMIRA [Suspect]
     Indication: PSORIASIS
     Dates: start: 20131101, end: 20131101
  2. HUMIRA [Suspect]
     Dates: start: 20131108
  3. METHOTREXATE [Concomitant]
     Indication: PSORIASIS
  4. FOLIC ACID [Concomitant]
     Indication: VITAMIN D DEFICIENCY
  5. VITAMIN D [Concomitant]
     Indication: VITAMIN D DEFICIENCY
  6. MULTIVITAMIN [Concomitant]
     Indication: VITAMIN SUPPLEMENTATION
  7. ALBUTEROL [Concomitant]
     Indication: ASTHMA
     Route: 055
  8. UREA [Concomitant]
     Indication: PRODUCT USED FOR UNKNOWN INDICATION
     Route: 061
  9. TRIAMCINOLONE [Concomitant]
     Indication: PRODUCT USED FOR UNKNOWN INDICATION
     Route: 061

REACTIONS (4)
  - Therapeutic response unexpected [Unknown]
  - Fatigue [Not Recovered/Not Resolved]
  - Musculoskeletal stiffness [Recovering/Resolving]
  - Psoriasis [Not Recovered/Not Resolved]
